FAERS Safety Report 8849222 (Version 1)
Quarter: 2012Q4

REPORT INFORMATION
  Report Type: Spontaneous
  Country: US (occurrence: None)
  Receive Date: 20121018
  Receipt Date: 20121018
  Transmission Date: 20130627
  Serious: Yes (Hospitalization)
  Sender: FDA-Public Use
  Company Number: None

PATIENT
  Age: 65 Year
  Sex: Male

DRUGS (1)
  1. ZYTIGA [Suspect]
     Indication: MALIGNANT NEOPLASM OF PROSTATE
     Route: 048
     Dates: start: 20120910

REACTIONS (4)
  - Dizziness [None]
  - Transient ischaemic attack [None]
  - Hypoaesthesia [None]
  - Speech disorder [None]
